FAERS Safety Report 7048930-9 (Version None)
Quarter: 2010Q4

REPORT INFORMATION
  Report Type: 
  Country: None (occurrence: None)
  Receive Date: 20101018
  Receipt Date: 20101005
  Transmission Date: 20110411
  Serious: Yes (Other)
  Sender: FDA-Public Use
  Company Number: PHHY2009TW60981

PATIENT

DRUGS (1)
  1. GLEEVEC [Suspect]
     Indication: GASTROINTESTINAL STROMAL TUMOUR
     Dosage: 400 MG (FREQUENCY UNSPECIFIED)
     Route: 048
     Dates: start: 20090510

REACTIONS (6)
  - ASTHMA [None]
  - DIARRHOEA [None]
  - DYSPNOEA [None]
  - FACE OEDEMA [None]
  - VOMITING [None]
  - WHITE BLOOD CELL COUNT DECREASED [None]
